FAERS Safety Report 7044803-6 (Version None)
Quarter: 2010Q4

REPORT INFORMATION
  Report Type: 
  Country: None (occurrence: None)
  Receive Date: 20101014
  Receipt Date: 20101001
  Transmission Date: 20110411
  Serious: Yes (Other)
  Sender: FDA-Public Use
  Company Number: PHHY2010US65753

PATIENT
  Sex: Female

DRUGS (1)
  1. FEMARA [Suspect]
     Dosage: 2.5 MG, UNK

REACTIONS (7)
  - BONE NEOPLASM [None]
  - CONVULSION [None]
  - COUGH [None]
  - GASTRIC NEOPLASM [None]
  - HEPATIC NEOPLASM [None]
  - LIVER DISORDER [None]
  - TREATMENT NONCOMPLIANCE [None]
